FAERS Safety Report 20723462 (Version 1)
Quarter: 2022Q2

REPORT INFORMATION
  Report Type: Spontaneous
  Country: IT (occurrence: IT)
  Receive Date: 20220419
  Receipt Date: 20220419
  Transmission Date: 20220721
  Serious: Yes (Hospitalization)
  Sender: FDA-Public Use
  Company Number: IT-MINISAL02-858072

PATIENT
  Age: 26 Year
  Sex: Female

DRUGS (2)
  1. CLARITHROMYCIN [Suspect]
     Active Substance: CLARITHROMYCIN
     Indication: Tonsillitis
     Dosage: 1000 MILLIGRAM, DAILY
     Route: 048
     Dates: start: 20211103, end: 20211109
  2. MEDROL [Suspect]
     Active Substance: METHYLPREDNISOLONE
     Indication: Product used for unknown indication
     Dosage: 48 MILLIGRAM, DAILY
     Route: 048
     Dates: start: 20211105, end: 20211108

REACTIONS (2)
  - Malaise [Recovering/Resolving]
  - Erythema [Recovering/Resolving]

NARRATIVE: CASE EVENT DATE: 20211107
